FAERS Safety Report 6125284-3 (Version None)
Quarter: 2009Q1

REPORT INFORMATION
  Report Type: 
  Country: None (occurrence: None)
  Receive Date: 20090319
  Receipt Date: 20090319
  Transmission Date: 20090719
  Serious: Yes (Other)
  Sender: FDA-Public Use
  Company Number: None

PATIENT
  Sex: Female
  Weight: 66.6788 kg

DRUGS (2)
  1. ASPIRIN,BUTALBITAL,CAFFEINE [Suspect]
     Indication: MIGRAINE
     Dosage: 50-325-40 MG 1-2 CAPS Q 4 HRS PRN ORAL
     Route: 048
     Dates: start: 20040801
  2. ASPIRIN,BUTALBITAL,CAFFEINE [Suspect]
     Indication: MIGRAINE
     Dosage: 50-325-40 MG 1-2 CAPS Q 4 HRS PRN ORAL
     Route: 048
     Dates: start: 20090317

REACTIONS (2)
  - ADVERSE EVENT [None]
  - NAUSEA [None]
